FAERS Safety Report 17584094 (Version 1)
Quarter: 2020Q1

REPORT INFORMATION
  Report Type: Other
  Country: JP (occurrence: JP)
  Receive Date: 20200326
  Receipt Date: 20200326
  Transmission Date: 20200409
  Serious: Yes (Other)
  Sender: FDA-Public Use
  Company Number: JP-CHANGZHOU PHARMACEUTICAL FACTORY-2081994

PATIENT

DRUGS (1)
  1. ROSUVASTATIN CALCIUM. [Suspect]
     Active Substance: ROSUVASTATIN CALCIUM
     Indication: DYSLIPIDAEMIA
     Route: 065

REACTIONS (2)
  - Blood lactate dehydrogenase increased [Recovered/Resolved]
  - Anaemia [Recovered/Resolved]
